FAERS Safety Report 9435112 (Version 2)
Quarter: 2013Q3

REPORT INFORMATION
  Report Type: Spontaneous
  Country: US (occurrence: US)
  Receive Date: 20130801
  Receipt Date: 20130828
  Transmission Date: 20140515
  Serious: Yes (Other)
  Sender: FDA-Public Use
  Company Number: CHPA2013US011979

PATIENT
  Age: 90 Year
  Sex: Female

DRUGS (7)
  1. VOLTAREN GEL [Suspect]
     Indication: ARTHRITIS
     Dosage: UNK, UNK
     Route: 061
     Dates: start: 201012
  2. VOLTAREN GEL [Suspect]
     Dosage: UNK, UNK
     Route: 061
     Dates: start: 20130725
  3. VOLTAREN GEL [Suspect]
     Dosage: UNK, UNK
  4. SYNTHROID [Concomitant]
     Dosage: UNK
  5. ASPIRIN [Concomitant]
     Dosage: UNK
  6. MULTIVITAMINS, PLAIN [Concomitant]
     Dosage: UNK
  7. PRILOSEC [Concomitant]
     Dosage: UNK

REACTIONS (4)
  - Coronary artery occlusion [Not Recovered/Not Resolved]
  - Drug administered at inappropriate site [Unknown]
  - Wrong technique in drug usage process [Unknown]
  - Underdose [Unknown]
